FAERS Safety Report 13839932 (Version 1)
Quarter: 2017Q3

REPORT INFORMATION
  Report Type: Spontaneous
  Country: US (occurrence: US)
  Receive Date: 20170807
  Receipt Date: 20170807
  Transmission Date: 20171127
  Serious: No
  Sender: FDA-Public Use
  Company Number: US-GLAXOSMITHKLINE-US2017GSK119919

PATIENT
  Sex: Female

DRUGS (1)
  1. BREO ELLIPTA [Suspect]
     Active Substance: FLUTICASONE FUROATE\VILANTEROL TRIFENATATE
     Indication: PRODUCT USED FOR UNKNOWN INDICATION
     Dosage: UNK
     Dates: start: 2017

REACTIONS (8)
  - Adverse reaction [Unknown]
  - Psychomotor hyperactivity [Unknown]
  - Dysgeusia [Unknown]
  - Teeth brittle [Unknown]
  - Gingival swelling [Unknown]
  - Product taste abnormal [Unknown]
  - Tooth fracture [Unknown]
  - Oral disorder [Unknown]
